FAERS Safety Report 24934857 (Version 3)
Quarter: 2025Q4

REPORT INFORMATION
  Report Type: Spontaneous
  Country: US (occurrence: US)
  Receive Date: 20250206
  Receipt Date: 20251103
  Transmission Date: 20260117
  Serious: Yes (Hospitalization)
  Sender: BRISTOL-MYERS SQUIBB COMPANY
  Company Number: US-BRISTOL-MYERS SQUIBB COMPANY-2025-017446

PATIENT
  Age: 81 Year
  Sex: Female

DRUGS (4)
  1. POMALYST [Suspect]
     Active Substance: POMALIDOMIDE
     Indication: Plasma cell myeloma
     Dosage: EVERY DAY FOR 14 DAYS
     Route: 048
     Dates: start: 20250116
  2. POMALYST [Suspect]
     Active Substance: POMALIDOMIDE
     Dosage: FREQUENCY: DAILY
     Route: 048
     Dates: start: 202412
  3. POMALYST [Suspect]
     Active Substance: POMALIDOMIDE
     Dosage: FREQUENCY: ONCE DAILY
     Route: 048
     Dates: start: 202412
  4. POMALYST [Suspect]
     Active Substance: POMALIDOMIDE
     Dosage: ONCE DAILY
     Route: 048
     Dates: start: 20241206

REACTIONS (5)
  - Platelet count decreased [Unknown]
  - Off label use [Unknown]
  - Diarrhoea [Unknown]
  - Tremor [Not Recovered/Not Resolved]
  - Pyrexia [Unknown]

NARRATIVE: CASE EVENT DATE: 20250307
